FAERS Safety Report 9109442 (Version 1)
Quarter: 2013Q1

REPORT INFORMATION
  Report Type: Spontaneous
  Country: US (occurrence: US)
  Receive Date: 20130222
  Receipt Date: 20130222
  Transmission Date: 20140127
  Serious: Yes (Other)
  Sender: FDA-Public Use
  Company Number: PHEH2013US003828

PATIENT
  Sex: Female

DRUGS (9)
  1. DIOVAN HCT [Suspect]
     Indication: BLOOD PRESSURE ABNORMAL
     Dosage: 1 DF (VALS 160 MG, HYDR 25), QD
     Route: 048
  2. AMLODIPINE [Suspect]
     Indication: BLOOD PRESSURE ABNORMAL
  3. LISINOPRIL [Suspect]
  4. PENICILLIN                         /02215301/ [Suspect]
  5. LEVAQUIN [Suspect]
  6. ASPIRIN [Suspect]
  7. METFORMIN [Concomitant]
  8. KLOR-CON [Concomitant]
  9. LYRICA [Concomitant]

REACTIONS (6)
  - Drug hypersensitivity [Unknown]
  - Pharyngeal oedema [Unknown]
  - Dysphonia [Unknown]
  - Urticaria [Unknown]
  - Nerve compression [Unknown]
  - Sinusitis [Unknown]
